FAERS Safety Report 7303944-6 (Version None)
Quarter: 2011Q1

REPORT INFORMATION
  Report Type: 
  Country: None (occurrence: None)
  Receive Date: 20110221
  Receipt Date: 20110210
  Transmission Date: 20110831
  Serious: Yes (Other)
  Sender: FDA-Public Use
  Company Number: US-ROCHE-760344

PATIENT
  Age: 1 Year

DRUGS (1)
  1. TAMIFLU [Suspect]
     Dosage: FREQUENCY: ONCE
     Route: 048

REACTIONS (1)
  - INCORRECT DOSE ADMINISTERED [None]
